FAERS Safety Report 13362331 (Version 1)
Quarter: 2017Q1

REPORT INFORMATION
  Report Type: Other
  Country: GB (occurrence: GB)
  Receive Date: 20170323
  Receipt Date: 20170323
  Transmission Date: 20170429
  Serious: Yes (Hospitalization, Other)
  Sender: FDA-Public Use
  Company Number: GB-APOTEX-2017AP008304

PATIENT
  Age: 82 Year
  Sex: Male

DRUGS (2)
  1. ALFA-D [Suspect]
     Active Substance: ALFACALCIDOL
     Indication: PRODUCT USED FOR UNKNOWN INDICATION
     Dosage: UNK
     Route: 065
  2. CLOPIDOGREL APOTEX [Suspect]
     Active Substance: CLOPIDOGREL BISULFATE
     Indication: PRODUCT USED FOR UNKNOWN INDICATION
     Dosage: UNK
     Route: 065

REACTIONS (8)
  - Nail discolouration [Unknown]
  - Drug prescribing error [Unknown]
  - Underweight [Unknown]
  - Pollakiuria [Unknown]
  - Skin exfoliation [Unknown]
  - Circulatory collapse [Recovered/Resolved]
  - Vertigo [Unknown]
  - Pruritus [Unknown]
